FAERS Safety Report 10889939 (Version 1)
Quarter: 2015Q1

REPORT INFORMATION
  Report Type: Spontaneous
  Country: US (occurrence: US)
  Receive Date: 20150305
  Receipt Date: 20150305
  Transmission Date: 20150721
  Serious: Yes (Death)
  Sender: FDA-Public Use
  Company Number: US-BANPHARM-20153598

PATIENT
  Age: 54 Year
  Sex: Female

DRUGS (4)
  1. ETHANOL [Suspect]
     Active Substance: ALCOHOL
  2. HYDROCODONE [Suspect]
     Active Substance: HYDROCODONE
  3. DIPHENHYDRAMINE UNKNOWN PRODUCT [Suspect]
     Active Substance: DIPHENHYDRAMINE
  4. ACETAMINOPHEN. [Suspect]
     Active Substance: ACETAMINOPHEN

REACTIONS (2)
  - Death [Fatal]
  - Exposure via ingestion [None]
